FAERS Safety Report 24106038 (Version 1)
Quarter: 2024Q3

REPORT INFORMATION
  Report Type: Spontaneous
  Country: US (occurrence: None)
  Receive Date: 20240716
  Receipt Date: 20240716
  Transmission Date: 20241017
  Serious: Yes (Life-Threatening, Disabling)
  Sender: Public
  Company Number: None

PATIENT
  Age: 55 Year
  Sex: Male
  Weight: 128.25 kg

DRUGS (11)
  1. DIETARY SUPPLEMENT [Suspect]
     Active Substance: DIETARY SUPPLEMENT
     Indication: Pain
     Dosage: 1 TABLET AT BEDTIME ORAL?
     Route: 048
     Dates: start: 20240101, end: 20240716
  2. DICLOFENAC [Suspect]
     Active Substance: DICLOFENAC
  3. OMEPRAZOLE [Suspect]
     Active Substance: OMEPRAZOLE
  4. APIXABAN [Concomitant]
     Active Substance: APIXABAN
  5. LOSARTAN [Concomitant]
     Active Substance: LOSARTAN
  6. VITAMIN D [Concomitant]
     Active Substance: VITAMIN D NOS
  7. BUMETANIDE [Concomitant]
     Active Substance: BUMETANIDE
  8. POTASSIUM [Concomitant]
     Active Substance: POTASSIUM
  9. SPIRONOLACTONE [Concomitant]
     Active Substance: SPIRONOLACTONE
  10. FLUTICASONE [Concomitant]
     Active Substance: FLUTICASONE
  11. DOFETILIDE [Concomitant]
     Active Substance: DOFETILIDE

REACTIONS (3)
  - Myocardial infarction [None]
  - Atrial fibrillation [None]
  - Product contamination [None]

NARRATIVE: CASE EVENT DATE: 20240708
